FAERS Safety Report 7044662 (Version 2)
Quarter: 2019Q4

REPORT INFORMATION
  Report Type: Spontaneous
  Country: IT (occurrence: IT)
  Receive Date: 20090626
  Receipt Date: 20191122
  Transmission Date: 20200122
  Serious: Yes (Congenital Anomaly)
  Sender: FDA-Public Use
  Company Number: GXKR2009IT07032

PATIENT
  Sex: Male
  Weight: 2.85 kg

DRUGS (1)
  1. MYCOPHENOLATE MOFETIL. [Suspect]
     Active Substance: MYCOPHENOLATE MOFETIL
     Indication: FOETAL EXPOSURE DURING PREGNANCY
     Dosage: 500 MG, QD (MATERNAL DOSE)
     Route: 064

REACTIONS (2)
  - Choroidal coloboma [Unknown]
  - Foetal exposure during pregnancy [Unknown]
